FAERS Safety Report 16331728 (Version 1)
Quarter: 2019Q2

REPORT INFORMATION
  Report Type: Spontaneous
  Country: US (occurrence: US)
  Receive Date: 20190518
  Receipt Date: 20190518
  Transmission Date: 20190711
  Serious: Yes (Other)
  Sender: FDA-Public Use
  Company Number: None

PATIENT
  Age: 51 Year
  Sex: Female
  Weight: 76.5 kg

DRUGS (5)
  1. VITAMIN C [Concomitant]
     Active Substance: ASCORBIC ACID
  2. NATURE-THROID [Concomitant]
     Active Substance: THYROID, PORCINE
  3. FENOFIBRATE. [Suspect]
     Active Substance: FENOFIBRATE
     Indication: BLOOD TRIGLYCERIDES INCREASED
     Route: 048
     Dates: start: 20180323, end: 20180430
  4. MICARDIS [Concomitant]
     Active Substance: TELMISARTAN
  5. VITAMIN A [Concomitant]
     Active Substance: VITAMIN A

REACTIONS (2)
  - Depression [None]
  - Therapy cessation [None]

NARRATIVE: CASE EVENT DATE: 20180430
